FAERS Safety Report 18889542 (Version 2)
Quarter: 2021Q1

REPORT INFORMATION
  Report Type: Spontaneous
  Country: HR (occurrence: HR)
  Receive Date: 20210213
  Receipt Date: 20210218
  Transmission Date: 20210420
  Serious: Yes (Hospitalization, Other)
  Sender: FDA-Public Use
  Company Number: HR-009507513-2102HRV004980

PATIENT
  Age: 75 Year
  Sex: Female

DRUGS (3)
  1. KEYTRUDA [Suspect]
     Active Substance: PEMBROLIZUMAB
     Indication: NON-SMALL CELL LUNG CANCER METASTATIC
     Dosage: UNK, 2 CYCLES
     Dates: start: 202009
  2. PEMETREXED DISODIUM [Suspect]
     Active Substance: PEMETREXED DISODIUM
  3. CISPLATIN. [Suspect]
     Active Substance: CISPLATIN

REACTIONS (4)
  - Bone marrow failure [Unknown]
  - Petechiae [Unknown]
  - Lymphocytosis [Unknown]
  - Pancytopenia [Unknown]

NARRATIVE: CASE EVENT DATE: 2020
